FAERS Safety Report 17370362 (Version 1)
Quarter: 2020Q1

REPORT INFORMATION
  Report Type: Spontaneous
  Country: JP (occurrence: JP)
  Receive Date: 20200205
  Receipt Date: 20200205
  Transmission Date: 20200409
  Serious: Yes (Death)
  Sender: FDA-Public Use
  Company Number: JP-SYNEX-T202000455

PATIENT
  Sex: Male
  Weight: 1 kg

DRUGS (4)
  1. INOFLO [Suspect]
     Active Substance: NITRIC OXIDE
     Indication: PULMONARY HYPOPLASIA
  2. INOFLO [Suspect]
     Active Substance: NITRIC OXIDE
     Indication: PULMONARY HYPERTENSION
     Dosage: UNK, PER INHALATION
     Route: 055
  3. OCTREOTIDE. [Concomitant]
     Active Substance: OCTREOTIDE
     Indication: PULMONARY HYPOPLASIA
  4. OCTREOTIDE. [Concomitant]
     Active Substance: OCTREOTIDE
     Indication: PULMONARY HYPERTENSION
     Dosage: UNK
     Route: 065

REACTIONS (1)
  - Lymphoedema [Fatal]
